FAERS Safety Report 4284801-9 (Version None)
Quarter: 2004Q1

REPORT INFORMATION
  Report Type: 
  Country: None (occurrence: None)
  Receive Date: 20040204
  Receipt Date: 20040128
  Transmission Date: 20041129
  Serious: Yes (Hospitalization)
  Sender: FDA-Public Use
  Company Number: 200410219DE

PATIENT
  Age: 63 Year
  Sex: Female

DRUGS (6)
  1. DOCETAXEL [Suspect]
     Indication: BREAST CANCER
     Route: 042
     Dates: start: 20040121, end: 20040121
  2. DOXORUBICIN HCL [Suspect]
     Indication: BREAST CANCER
     Dates: start: 20040121, end: 20040121
  3. CYCLOPHOSPHAMIDE [Suspect]
     Indication: BREAST CANCER
     Dates: start: 20040121, end: 20040121
  4. NAVOBAN [Concomitant]
     Route: 042
     Dates: end: 20040121
  5. DEXAMETHASONE [Concomitant]
     Route: 042
     Dates: end: 20040121
  6. UROMITEXAN [Concomitant]
     Route: 048
     Dates: end: 20040121

REACTIONS (6)
  - ANGLE CLOSURE GLAUCOMA [None]
  - COLITIS [None]
  - HEADACHE [None]
  - NAUSEA [None]
  - SEPSIS [None]
  - VOMITING [None]
